FAERS Safety Report 5889219-0 (Version None)
Quarter: 2008Q3

REPORT INFORMATION
  Report Type: 
  Country: None (occurrence: None)
  Receive Date: 20080919
  Receipt Date: 20080910
  Transmission Date: 20090109
  Serious: Yes (Hospitalization)
  Sender: FDA-Public Use
  Company Number: DE-AMGEN-US306980

PATIENT
  Sex: Male
  Weight: 87 kg

DRUGS (5)
  1. ENBREL [Suspect]
     Indication: PSORIASIS
     Route: 058
     Dates: start: 20080201, end: 20080711
  2. IBUPROFEN TABLETS [Suspect]
     Dosage: WHEN NEEDED
     Route: 065
     Dates: start: 19960701, end: 20080101
  3. SIMVASTATIN [Suspect]
     Dosage: UNKNOWN
     Route: 048
     Dates: end: 20080101
  4. METHOTREXATE [Concomitant]
     Route: 065
     Dates: start: 19970401
  5. MICARDIS [Concomitant]
     Route: 048
     Dates: start: 19950701

REACTIONS (1)
  - HEPATITIS TOXIC [None]
